FAERS Safety Report 8784629 (Version 1)
Quarter: 2012Q4

REPORT INFORMATION
  Report Type: Spontaneous
  Country: FR (occurrence: None)
  Receive Date: 20120831
  Receipt Date: 20120831
  Transmission Date: 20130627
  Serious: Yes (Death)
  Sender: FDA-Public Use
  Company Number: CIP-2012-00301

PATIENT

DRUGS (4)
  1. IRINOTECAN [Suspect]
     Indication: ADENOCARCINOMA OF THE GASTROESOPHAGEAL JUNCTION
     Dosage: day 1
  2. LEUCOVORIN [Suspect]
     Indication: ADENOCARCINOMA OF THE GASTROESOPHAGEAL JUNCTION
  3. FLUOROURACIL (FLUOROURACIL) [Suspect]
     Route: 040
  4. FLUOROURACIL (FLUOROURACIL) [Suspect]
     Route: 042

REACTIONS (3)
  - Diarrhoea [None]
  - Disease progression [None]
  - Oesophageal adenocarcinoma [None]
